FAERS Safety Report 21993601 (Version 4)
Quarter: 2024Q2

REPORT INFORMATION
  Report Type: Spontaneous
  Country: JP (occurrence: JP)
  Receive Date: 20230215
  Receipt Date: 20240408
  Transmission Date: 20240716
  Serious: Yes (Hospitalization)
  Sender: FDA-Public Use
  Company Number: JP-teijin-202300101_XE_P_1

PATIENT
  Age: 67 Year
  Sex: Male
  Weight: 70.3 kg

DRUGS (28)
  1. XEOMIN [Suspect]
     Active Substance: INCOBOTULINUMTOXINA
     Indication: Muscle spasticity
     Route: 030
     Dates: start: 20220210, end: 20220210
  2. XEOMIN [Suspect]
     Active Substance: INCOBOTULINUMTOXINA
     Indication: Muscle spasticity
  3. BOTOX [Concomitant]
     Active Substance: ONABOTULINUMTOXINA
     Indication: Muscle spasticity
     Route: 030
     Dates: start: 20211029, end: 20211029
  4. BOTOX [Concomitant]
     Active Substance: ONABOTULINUMTOXINA
     Indication: Muscle spasticity
  5. BOTOX [Concomitant]
     Active Substance: ONABOTULINUMTOXINA
  6. BOTOX [Concomitant]
     Active Substance: ONABOTULINUMTOXINA
  7. BOTOX [Concomitant]
     Active Substance: ONABOTULINUMTOXINA
  8. BOTOX [Concomitant]
     Active Substance: ONABOTULINUMTOXINA
  9. BOTOX [Concomitant]
     Active Substance: ONABOTULINUMTOXINA
  10. BOTOX [Concomitant]
     Active Substance: ONABOTULINUMTOXINA
  11. BOTOX [Concomitant]
     Active Substance: ONABOTULINUMTOXINA
  12. BOTOX [Concomitant]
     Active Substance: ONABOTULINUMTOXINA
  13. BOTOX [Concomitant]
     Active Substance: ONABOTULINUMTOXINA
  14. BOTOX [Concomitant]
     Active Substance: ONABOTULINUMTOXINA
  15. BOTOX [Concomitant]
     Active Substance: ONABOTULINUMTOXINA
  16. BOTOX [Concomitant]
     Active Substance: ONABOTULINUMTOXINA
  17. BOTOX [Concomitant]
     Active Substance: ONABOTULINUMTOXINA
  18. BOTOX [Concomitant]
     Active Substance: ONABOTULINUMTOXINA
  19. BOTOX [Concomitant]
     Active Substance: ONABOTULINUMTOXINA
  20. BOTOX [Concomitant]
     Active Substance: ONABOTULINUMTOXINA
     Route: 030
     Dates: start: 20220610, end: 20220610
  21. EDOXABAN TOSYLATE [Concomitant]
     Active Substance: EDOXABAN TOSYLATE
     Indication: Prophylaxis
     Dosage: 60 MG
     Route: 048
  22. LANSOPRAZOLE [Concomitant]
     Active Substance: LANSOPRAZOLE
     Indication: Gastrooesophageal reflux disease
     Dosage: 15 MG
     Route: 048
  23. DUTASTERIDE [Concomitant]
     Active Substance: DUTASTERIDE
     Indication: Benign prostatic hyperplasia
     Dosage: 0.5 MG
     Route: 048
  24. TAMSULOSIN HYDROCHLORIDE [Concomitant]
     Active Substance: TAMSULOSIN HYDROCHLORIDE
     Indication: Benign prostatic hyperplasia
     Dosage: 0.2 MG
     Route: 048
  25. AMBROXOL HYDROCHLORIDE OD [Concomitant]
     Indication: Cough
     Dosage: 45 MG
     Route: 048
  26. CARBOCYSTEINE [Concomitant]
     Active Substance: CARBOCYSTEINE
     Indication: Cough
     Dosage: 500 MG
     Route: 048
  27. MAGNESIUM OXIDE [Concomitant]
     Active Substance: MAGNESIUM OXIDE
     Indication: Constipation
     Dosage: 660 MG
     Route: 048
  28. DIMETHICONE [Concomitant]
     Active Substance: DIMETHICONE
     Indication: Flatulence
     Dosage: 160 MG
     Route: 048

REACTIONS (4)
  - Fall [Recovered/Resolved]
  - Aphasia [Recovered/Resolved]
  - Muscular weakness [Recovered/Resolved]
  - Off label use [Unknown]

NARRATIVE: CASE EVENT DATE: 20220210
